FAERS Safety Report 6720483-1 (Version None)
Quarter: 2010Q2

REPORT INFORMATION
  Report Type: 
  Country: None (occurrence: None)
  Receive Date: 20100511
  Receipt Date: 20100505
  Transmission Date: 20101027
  Serious: Yes (Other)
  Sender: FDA-Public Use
  Company Number: HR-ABBOTT-10P-216-0639787-00

PATIENT
  Age: 67 Year
  Sex: Male
  Weight: 85 kg

DRUGS (4)
  1. HUMIRA [Suspect]
     Indication: RHEUMATOID ARTHRITIS
     Dates: start: 20100112, end: 20100223
  2. METHOTREXATE [Concomitant]
     Indication: RHEUMATOID ARTHRITIS
     Dates: start: 20070301
  3. SALAZOPIRINA [Concomitant]
     Indication: RHEUMATOID ARTHRITIS
     Dates: start: 20070301
  4. ARAVA [Concomitant]
     Indication: RHEUMATOID ARTHRITIS
     Dates: start: 20070101

REACTIONS (5)
  - ALTERED STATE OF CONSCIOUSNESS [None]
  - CHILLS [None]
  - DYSPNOEA [None]
  - NYSTAGMUS [None]
  - PYREXIA [None]
